FAERS Safety Report 5250248-1 (Version None)
Quarter: 2007Q1

REPORT INFORMATION
  Report Type: 
  Country: None (occurrence: None)
  Receive Date: 20070228
  Receipt Date: 20060321
  Transmission Date: 20070707
  Serious: No
  Sender: FDA-Public Use
  Company Number: US-GLAXOSMITHKLINE-A0596519A

PATIENT
  Age: 16 Year
  Sex: Female
  Weight: 158 kg

DRUGS (2)
  1. LAMICTAL [Suspect]
     Indication: BIPOLAR DISORDER
     Dosage: 100MG PER DAY
     Route: 048
     Dates: start: 20050901
  2. NO CONCURRENT MEDICATION [Concomitant]

REACTIONS (4)
  - FEELING HOT [None]
  - FLUSHING [None]
  - HOT FLUSH [None]
  - IRRITABILITY [None]
